FAERS Safety Report 9466354 (Version 2)
Quarter: 2014Q1

REPORT INFORMATION
  Report Type: Spontaneous
  Country: US (occurrence: US)
  Receive Date: 20130820
  Receipt Date: 20140317
  Transmission Date: 20141002
  Serious: Yes (Death, Other)
  Sender: FDA-Public Use
  Company Number: US-MERCK-1308USA008312

PATIENT
  Sex: Female

DRUGS (2)
  1. JANUVIA [Suspect]
     Dosage: UNK
     Route: 048
     Dates: start: 2007, end: 2010
  2. BYETTA [Suspect]
     Dosage: UNK
     Dates: start: 2005, end: 2007

REACTIONS (1)
  - Pancreatic carcinoma [Fatal]
